FAERS Safety Report 14669166 (Version 2)
Quarter: 2018Q1

REPORT INFORMATION
  Report Type: Report from Study
  Country: US (occurrence: US)
  Receive Date: 20180322
  Receipt Date: 20180328
  Transmission Date: 20180509
  Serious: Yes (Other)
  Sender: FDA-Public Use
  Company Number: US-AMGEN-USASL2018038001

PATIENT
  Age: 60 Year
  Sex: Male

DRUGS (3)
  1. REMICADE [Concomitant]
     Active Substance: INFLIXIMAB
     Dosage: UNK
  2. ENBREL [Suspect]
     Active Substance: ETANERCEPT
     Indication: RHEUMATOID ARTHRITIS
     Dosage: 50 MG, QWK
     Route: 065
     Dates: start: 201711
  3. HUMIRA [Concomitant]
     Active Substance: ADALIMUMAB
     Dosage: UNK

REACTIONS (7)
  - Muscle spasms [Unknown]
  - Injection site bruising [Unknown]
  - Underdose [Unknown]
  - Wrong technique in product usage process [Unknown]
  - Fall [Unknown]
  - Rheumatoid arthritis [Unknown]
  - Injection site pain [Unknown]
